FAERS Safety Report 24935908 (Version 1)
Quarter: 2025Q1

REPORT INFORMATION
  Report Type: Report from Study
  Country: US (occurrence: US)
  Receive Date: 20250206
  Receipt Date: 20250206
  Transmission Date: 20250409
  Serious: Yes (Other)
  Sender: EXELIXIS
  Company Number: US-EXELIXIS-EXL-2024-000491

PATIENT
  Sex: Female

DRUGS (5)
  1. CABOMETYX [Suspect]
     Active Substance: CABOZANTINIB S-MALATE
     Indication: Adrenal gland cancer
     Dosage: 60 MG, QD
     Dates: start: 20240828
  2. PEPCID [Concomitant]
     Active Substance: FAMOTIDINE
  3. NEXIUM [Concomitant]
     Active Substance: ESOMEPRAZOLE MAGNESIUM
  4. LEVOTHYROXINE [Concomitant]
     Active Substance: LEVOTHYROXINE
  5. FLEXERIL [Concomitant]
     Active Substance: CYCLOBENZAPRINE HYDROCHLORIDE

REACTIONS (10)
  - Malignant neoplasm progression [Unknown]
  - Fatigue [Unknown]
  - Dysphonia [Unknown]
  - Diarrhoea [Unknown]
  - Dyspepsia [Unknown]
  - Hyperkeratosis [Not Recovered/Not Resolved]
  - Heavy menstrual bleeding [Unknown]
  - Urinary tract infection [Recovered/Resolved]
  - Oral pain [Unknown]
  - Off label use [Unknown]
